FAERS Safety Report 15838291 (Version 12)
Quarter: 2025Q3

REPORT INFORMATION
  Report Type: Spontaneous
  Country: EU (occurrence: EU)
  Receive Date: 20190117
  Receipt Date: 20250916
  Transmission Date: 20251020
  Serious: Yes (Hospitalization, Other)
  Sender: PFIZER
  Company Number: EU-PFIZER INC-2011204503

PATIENT
  Age: 31 Year
  Sex: Female

DRUGS (24)
  1. GABAPENTIN [Suspect]
     Active Substance: GABAPENTIN
     Dosage: 300 MG, 3X/DAY
     Dates: start: 200904
  2. PREGABALIN [Suspect]
     Active Substance: PREGABALIN
     Dosage: 300 MG, 2X/DAY
     Dates: start: 201003
  3. FENTANYL [Suspect]
     Active Substance: FENTANYL
     Route: 062
     Dates: start: 201003
  4. SERTRALINE HYDROCHLORIDE [Suspect]
     Active Substance: SERTRALINE HYDROCHLORIDE
     Dates: start: 200805
  5. SERTRALINE HYDROCHLORIDE [Suspect]
     Active Substance: SERTRALINE HYDROCHLORIDE
     Dates: start: 200904
  6. DIAZEPAM [Suspect]
     Active Substance: DIAZEPAM
     Dates: start: 200709
  7. DIAZEPAM [Suspect]
     Active Substance: DIAZEPAM
     Dates: start: 201003
  8. CARBAMAZEPINE [Suspect]
     Active Substance: CARBAMAZEPINE
     Dosage: 200 MG, 2X/DAY
     Dates: start: 200709
  9. ACETAMINOPHEN\TRAMADOL [Suspect]
     Active Substance: ACETAMINOPHEN\TRAMADOL
     Dates: start: 200709
  10. ACETAMINOPHEN\TRAMADOL [Suspect]
     Active Substance: ACETAMINOPHEN\TRAMADOL
     Dates: start: 201003
  11. BUPRENORPHINE [Suspect]
     Active Substance: BUPRENORPHINE
     Dates: start: 200904
  12. OXYCODONE [Suspect]
     Active Substance: OXYCODONE
     Dosage: 10 MG, 3X/DAY
     Dates: start: 200904
  13. OXYCODONE [Suspect]
     Active Substance: OXYCODONE
     Dates: start: 201003
  14. BACLOFEN [Suspect]
     Active Substance: BACLOFEN
     Dosage: 10 MG, 3X/DAY
     Dates: start: 200709
  15. BACLOFEN [Suspect]
     Active Substance: BACLOFEN
     Dosage: 25 MG, 3X/DAY
     Dates: start: 200805
  16. ESOMEPRAZOLE [Suspect]
     Active Substance: ESOMEPRAZOLE
     Dosage: 20 MG, 2X/DAY
     Dates: start: 201003
  17. ALPRAZOLAM [Concomitant]
     Active Substance: ALPRAZOLAM
     Dates: start: 200805
  18. LEVOTHYROXINE [Concomitant]
     Active Substance: LEVOTHYROXINE
     Dates: start: 200703
  19. LEVOTHYROXINE [Concomitant]
     Active Substance: LEVOTHYROXINE
     Dates: start: 201003
  20. PIROXICAM [Concomitant]
     Active Substance: PIROXICAM
     Dates: start: 200709
  21. RANITIDINE [Concomitant]
     Active Substance: RANITIDINE
     Dosage: 150 MG, 2X/DAY
     Dates: start: 200709
  22. IBUPROFEN [Concomitant]
     Active Substance: IBUPROFEN
     Dates: start: 200703
  23. GINKGO [Concomitant]
     Active Substance: GINKGO
     Dates: start: 201003
  24. NEUROBION FORTE [Concomitant]
     Active Substance: CYANOCOBALAMIN\PYRIDOXINE HYDROCHLORIDE\THIAMINE DISULFIDE
     Dates: start: 200805

REACTIONS (12)
  - Ataxia [Unknown]
  - Confusional state [Unknown]
  - Rash [Unknown]
  - Fatigue [Unknown]
  - Asthenia [Unknown]
  - Dizziness [Unknown]
  - Sedation [Unknown]
  - Oedema [Unknown]
  - Pruritus [Unknown]
  - Constipation [Unknown]
  - Nausea [Unknown]
  - Vomiting [Unknown]
